FAERS Safety Report 7960336-4 (Version None)
Quarter: 2011Q4

REPORT INFORMATION
  Report Type: 
  Country: None (occurrence: None)
  Receive Date: 20111206
  Receipt Date: 20111206
  Transmission Date: 20120403
  Serious: Yes (Hospitalization)
  Sender: FDA-Public Use
  Company Number: PHHO2010FR18306

PATIENT
  Sex: Male
  Weight: 52 kg

DRUGS (6)
  1. FLUCONAZOLE [Concomitant]
  2. AFINITOR [Suspect]
     Indication: METASTATIC GASTRIC CANCER
     Dosage: 10 MG, QD
     Route: 048
     Dates: start: 20101105, end: 20101122
  3. MUCOMYST [Concomitant]
  4. OMEPRAZOLE [Concomitant]
  5. MAALOX                                  /NET/ [Concomitant]
  6. ASPIRIN [Concomitant]

REACTIONS (8)
  - DYSPEPSIA [None]
  - OROPHARYNGEAL CANDIDIASIS [None]
  - STOMATITIS [None]
  - OESOPHAGITIS [None]
  - DECREASED APPETITE [None]
  - NEOPLASM MALIGNANT [None]
  - DYSPHAGIA [None]
  - VOMITING [None]
